FAERS Safety Report 6710090-9 (Version None)
Quarter: 2010Q2

REPORT INFORMATION
  Report Type: 
  Country: None (occurrence: None)
  Receive Date: 20100430
  Receipt Date: 20100428
  Transmission Date: 20101027
  Serious: Yes (Other)
  Sender: FDA-Public Use
  Company Number: 009517

PATIENT
  Age: 8 Month
  Sex: Female
  Weight: 5.8 kg

DRUGS (6)
  1. BUSULFEX [Suspect]
     Indication: STEM CELL TRANSPLANT
     Dosage: 37.5 MG/M2, Q6HR, INTRAVENOUS
     Route: 042
  2. FLUDARABINE PHOSPHATE [Concomitant]
  3. CYCLOPHOSPHAMIDE [Concomitant]
  4. THYMOGLOBULIN [Concomitant]
  5. METHYLPREDNISOLONE [Concomitant]
  6. TACROLIMUS [Concomitant]

REACTIONS (15)
  - ACUTE GRAFT VERSUS HOST DISEASE IN SKIN [None]
  - ANAEMIA [None]
  - CLOSTRIDIAL INFECTION [None]
  - FAILURE TO THRIVE [None]
  - HEPATOSPLENOMEGALY [None]
  - HYPOGAMMAGLOBULINAEMIA [None]
  - HYPOPHAGIA [None]
  - INTERSTITIAL LUNG DISEASE [None]
  - MYCOBACTERIUM CHELONEI INFECTION [None]
  - PERICARDIAL EFFUSION [None]
  - PSEUDOMONAS INFECTION [None]
  - T-LYMPHOCYTE COUNT ABNORMAL [None]
  - THYMUS DISORDER [None]
  - TONSILLAR DISORDER [None]
  - WHITE BLOOD CELL COUNT DECREASED [None]
